FAERS Safety Report 4753604-0 (Version None)
Quarter: 2005Q3

REPORT INFORMATION
  Report Type: 
  Country: None (occurrence: None)
  Receive Date: 20050826
  Receipt Date: 20040923
  Transmission Date: 20060218
  Serious: No
  Sender: FDA-Public Use
  Company Number: US-GLAXOSMITHKLINE-A0527103A

PATIENT
  Age: 39 Year
  Sex: Female

DRUGS (3)
  1. BECONASE [Suspect]
     Dosage: 4SPR TWICE PER DAY
     Route: 045
     Dates: start: 20040801
  2. BECONASE [Suspect]
     Route: 045
  3. NO CONCURRENT MEDICATION [Concomitant]

REACTIONS (3)
  - DYSGEUSIA [None]
  - NASAL DISCOMFORT [None]
  - RHINITIS [None]
